FAERS Safety Report 22629787 (Version 1)
Quarter: 2023Q2

REPORT INFORMATION
  Report Type: Spontaneous
  Country: JP (occurrence: JP)
  Receive Date: 20230622
  Receipt Date: 20230622
  Transmission Date: 20230722
  Serious: Yes (Other)
  Sender: FDA-Public Use
  Company Number: JP-SUN PHARMACEUTICAL INDUSTRIES LTD-2023RR-395253

PATIENT
  Age: 59 Year
  Sex: Male

DRUGS (4)
  1. PREDNISOLONE [Suspect]
     Active Substance: PREDNISOLONE
     Indication: Headache
     Dosage: 40 MILLIGRAM, UNK
     Route: 065
  2. SUMATRIPTAN [Suspect]
     Active Substance: SUMATRIPTAN
     Indication: Headache
     Dosage: 50 MILLIGRAM,  3 MG/0.5 ML INJECTION
  3. VERAPAMIL [Suspect]
     Active Substance: VERAPAMIL HYDROCHLORIDE
     Indication: Headache
     Dosage: 240 MILLIGRAM, UNK
     Route: 065
  4. VALPROIC ACID [Suspect]
     Active Substance: VALPROIC ACID
     Indication: Prophylaxis
     Dosage: 400 MILLIGRAM, UNK
     Route: 065

REACTIONS (3)
  - Drug ineffective [Unknown]
  - Rash [Unknown]
  - Somnolence [Unknown]
